FAERS Safety Report 19766809 (Version 5)
Quarter: 2021Q4

REPORT INFORMATION
  Report Type: Spontaneous
  Country: JP (occurrence: JP)
  Receive Date: 20210831
  Receipt Date: 20211021
  Transmission Date: 20220303
  Serious: No
  Sender: FDA-Public Use
  Company Number: JP-JNJFOC-20210835182

PATIENT
  Age: 9 Decade
  Sex: Female
  Weight: 41 kg

DRUGS (1)
  1. SIMPONI [Suspect]
     Active Substance: GOLIMUMAB
     Indication: Product used for unknown indication
     Dosage: STRENGTH: 50.00 MG / 0.50 ML?DOSE UNKNOWN
     Route: 058

REACTIONS (3)
  - Needle issue [Unknown]
  - Drug delivery system malfunction [Unknown]
  - Underdose [Unknown]

NARRATIVE: CASE EVENT DATE: 20210806
